FAERS Safety Report 7204474 (Version 2)
Quarter: 2012Q4

REPORT INFORMATION
  Report Type: Report from Study
  Country: ES (occurrence: ES)
  Receive Date: 20091208
  Receipt Date: 20120927
  Transmission Date: 20130627
  Serious: Yes (Hospitalization, Other)
  Sender: FDA-Public Use
  Company Number: ES-JNJFOC-20091201617

PATIENT
  Age: 69 Year
  Sex: Male
  Weight: 85 kg

DRUGS (1)
  1. REMICADE [Suspect]
     Indication: ANKYLOSING SPONDYLITIS
     Dosage: dose ^500^
     Route: 042
     Dates: start: 20001222, end: 20070930

REACTIONS (5)
  - Retroperitoneal haemorrhage [Recovered/Resolved]
  - Vena cava injury [Recovered/Resolved]
  - Pneumonia [Unknown]
  - Pulmonary sepsis [Not Recovered/Not Resolved]
  - Septic shock [Unknown]
